FAERS Safety Report 6667544-3 (Version None)
Quarter: 2010Q2

REPORT INFORMATION
  Report Type: 
  Country: None (occurrence: None)
  Receive Date: 20100405
  Receipt Date: 20100323
  Transmission Date: 20101027
  Serious: Yes (Other)
  Sender: FDA-Public Use
  Company Number: US-ELI_LILLY_AND_COMPANY-US201003006691

PATIENT
  Sex: Female

DRUGS (1)
  1. CYMBALTA [Suspect]
     Dosage: 90 MG, 2/D
     Dates: end: 20100201

REACTIONS (3)
  - HEPATIC ENZYME INCREASED [None]
  - HEPATOMEGALY [None]
  - OVERDOSE [None]
